FAERS Safety Report 9568912 (Version 1)
Quarter: 2013Q3

REPORT INFORMATION
  Report Type: Spontaneous
  Country: US (occurrence: US)
  Receive Date: 20130930
  Receipt Date: 20130930
  Transmission Date: 20140515
  Serious: Yes (Other)
  Sender: FDA-Public Use
  Company Number: US-AMGEN-USASP2013060653

PATIENT
  Age: 59 Year
  Sex: Female
  Weight: 104.17 kg

DRUGS (16)
  1. ENBREL [Suspect]
     Indication: PRODUCT USED FOR UNKNOWN INDICATION
     Dosage: 50 MG, QWK
     Route: 058
  2. METHOTREXATE [Concomitant]
     Dosage: 2.5 MG, UNK
  3. LEUCOVORIN CA [Concomitant]
     Dosage: 10 MG, UNK
  4. ALDACTONE                          /00006201/ [Concomitant]
     Dosage: 50 MG, UNK
  5. TOPAMAX [Concomitant]
     Dosage: 50 MG, UNK
  6. ZOLOFT [Concomitant]
     Dosage: 25 MG, UNK
  7. VISTARIL                           /00058402/ [Concomitant]
     Dosage: 25 MG, UNK
  8. METOPROLOL [Concomitant]
     Dosage: 50 MG, UNK, ER
  9. PRILOSEC                           /00661201/ [Concomitant]
     Dosage: 10 MG, UNK
  10. ARMOUR THYROID [Concomitant]
     Dosage: 15 MG, UNK
  11. ASA [Concomitant]
     Dosage: 81 MG, UNK, LOW DOSE EC
  12. HYDROCODONE W/APAP                 /00607101/ [Concomitant]
     Dosage: 7.5-300
  13. COLCRYS [Concomitant]
     Dosage: 0.6 MG, UNK
  14. VITAMIN C                          /00008001/ [Concomitant]
     Dosage: 500 MG, UNK
  15. FOLIC ACID [Concomitant]
     Dosage: UNK
  16. ZANAFLEX [Concomitant]
     Dosage: 4 MG, UNK

REACTIONS (1)
  - Cardiac failure congestive [Unknown]
